FAERS Safety Report 20069626 (Version 1)
Quarter: 2021Q4

REPORT INFORMATION
  Report Type: Spontaneous
  Country: US (occurrence: US)
  Receive Date: 20211115
  Receipt Date: 20211115
  Transmission Date: 20220303
  Serious: No
  Sender: FDA-Public Use
  Company Number: US-OptiNose US, Inc-2020OPT000521

PATIENT
  Sex: Male

DRUGS (6)
  1. XHANCE [Suspect]
     Active Substance: FLUTICASONE PROPIONATE
     Indication: Nasal polyps
     Dosage: 372-744 MCG
     Route: 045
     Dates: start: 20190321
  2. XHANCE [Suspect]
     Active Substance: FLUTICASONE PROPIONATE
     Dosage: 372-744 MCG PER DAY
     Route: 045
  3. SAXENDA [Concomitant]
     Active Substance: LIRAGLUTIDE
     Indication: Product used for unknown indication
     Route: 065
  4. BREO ELLIPTA [Concomitant]
     Active Substance: FLUTICASONE FUROATE\VILANTEROL TRIFENATATE
     Indication: Product used for unknown indication
     Route: 065
  5. NEXIUM [Concomitant]
     Active Substance: ESOMEPRAZOLE MAGNESIUM
     Indication: Product used for unknown indication
     Route: 065
  6. QNASL [Concomitant]
     Active Substance: BECLOMETHASONE DIPROPIONATE
     Indication: Product used for unknown indication
     Route: 065

REACTIONS (3)
  - Lacrimation increased [Unknown]
  - Visual impairment [Unknown]
  - Product dose omission issue [Unknown]
